FAERS Safety Report 11150614 (Version 1)
Quarter: 2015Q2

REPORT INFORMATION
  Report Type: Spontaneous
  Country: US (occurrence: US)
  Receive Date: 20150601
  Receipt Date: 20150601
  Transmission Date: 20150821
  Serious: No
  Sender: FDA-Public Use
  Company Number: US-ELI_LILLY_AND_COMPANY-US201505006564

PATIENT
  Sex: Female

DRUGS (1)
  1. FORTEO [Suspect]
     Active Substance: TERIPARATIDE
     Indication: OSTEOPOROSIS
     Dosage: UNK,UNK,UNK
     Route: 065
     Dates: start: 20150315, end: 201504

REACTIONS (3)
  - Pain [Unknown]
  - Insomnia [Unknown]
  - Hypoaesthesia [Unknown]
